FAERS Safety Report 8144010-X (Version None)
Quarter: 2012Q1

REPORT INFORMATION
  Report Type: 
  Country: None (occurrence: None)
  Receive Date: 20120217
  Receipt Date: 20120217
  Transmission Date: 20120608
  Serious: Yes (Other)
  Sender: FDA-Public Use
  Company Number: None

PATIENT
  Age: 52 Year
  Sex: Male
  Weight: 90.718 kg

DRUGS (1)
  1. TELAPREVIR [Suspect]
     Indication: HEPATITIS C

REACTIONS (3)
  - BLISTER [None]
  - URTICARIA [None]
  - ANORECTAL DISORDER [None]
